FAERS Safety Report 24979296 (Version 2)
Quarter: 2025Q2

REPORT INFORMATION
  Report Type: Spontaneous
  Country: GB (occurrence: GB)
  Receive Date: 20250218
  Receipt Date: 20250403
  Transmission Date: 20250717
  Serious: Yes (Death, Life-Threatening, Hospitalization, Other)
  Sender: CELLTRION
  Company Number: None

PATIENT

DRUGS (7)
  1. RITUXIMAB [Suspect]
     Active Substance: RITUXIMAB
     Indication: Seronegative arthritis
     Dates: start: 202311
  2. ETORICOXIB [Concomitant]
     Active Substance: ETORICOXIB
  3. PROMETHAZINE [Concomitant]
     Active Substance: PROMETHAZINE HYDROCHLORIDE
  4. LEVOTHYROXINE [Concomitant]
     Active Substance: LEVOTHYROXINE
  5. LANSOPRAZOLE [Concomitant]
     Active Substance: LANSOPRAZOLE
  6. FOLIC ACID [Concomitant]
     Active Substance: FOLIC ACID
  7. COCODAMOL [Concomitant]
     Active Substance: ACETAMINOPHEN\CODEINE PHOSPHATE

REACTIONS (17)
  - Peritonitis [Fatal]
  - Urogenital fistula [Fatal]
  - Multiple organ dysfunction syndrome [Fatal]
  - Vulvovaginal injury [Fatal]
  - Sepsis [Fatal]
  - Vaginal haemorrhage [Unknown]
  - Septic shock [Not Recovered/Not Resolved]
  - Liver function test abnormal [Unknown]
  - Disseminated intravascular coagulation [Unknown]
  - Acute kidney injury [Unknown]
  - Hepatic failure [Unknown]
  - Device related infection [Unknown]
  - Cervix inflammation [Not Recovered/Not Resolved]
  - Inflammatory marker increased [Unknown]
  - Vulvovaginal inflammation [Not Recovered/Not Resolved]
  - Vaginal infection [Not Recovered/Not Resolved]
  - Pyrexia [Unknown]

NARRATIVE: CASE EVENT DATE: 20231201
